FAERS Safety Report 6570452-X (Version None)
Quarter: 2010Q1

REPORT INFORMATION
  Report Type: 
  Country: None (occurrence: None)
  Receive Date: 20100204
  Receipt Date: 20090625
  Transmission Date: 20100710
  Serious: No
  Sender: FDA-Public Use
  Company Number: A0793788A

PATIENT
  Age: 38 Year
  Sex: Male

DRUGS (2)
  1. ARIXTRA [Suspect]
     Indication: DEEP VEIN THROMBOSIS
     Dosage: 10MG PER DAY
     Route: 058
     Dates: start: 20090515
  2. MULTI-VITAMIN [Concomitant]

REACTIONS (2)
  - HEADACHE [None]
  - HYPERTENSION [None]
